FAERS Safety Report 13863585 (Version 2)
Quarter: 2017Q3

REPORT INFORMATION
  Report Type: Spontaneous
  Country: US (occurrence: US)
  Receive Date: 20170814
  Receipt Date: 20170828
  Transmission Date: 20171127
  Serious: No
  Sender: FDA-Public Use
  Company Number: US-PFIZER INC-2017349392

PATIENT
  Sex: Male

DRUGS (3)
  1. ENBREL [Suspect]
     Active Substance: ETANERCEPT
     Dosage: 50 MG/ML, UNK
  2. MEDROL [Suspect]
     Active Substance: METHYLPREDNISOLONE
     Dosage: 4 MG, UNK
  3. PROMETHAZINE - CODEINE [Suspect]
     Active Substance: CODEINE\PROMETHAZINE
     Dosage: UNK [PROMETHAZINE 6.25 MG]/[CODEINE 10MG/5 ML SYRUP]

REACTIONS (14)
  - Injection site rash [Unknown]
  - Arthralgia [Unknown]
  - Muscular weakness [Unknown]
  - Synovitis [Unknown]
  - Musculoskeletal stiffness [Unknown]
  - Joint stiffness [Unknown]
  - Tenosynovitis [Unknown]
  - Hypoaesthesia [Unknown]
  - Joint swelling [Unknown]
  - Blood pressure increased [Unknown]
  - Musculoskeletal pain [Unknown]
  - Raynaud^s phenomenon [Unknown]
  - Fatigue [Unknown]
  - Injection site pain [Unknown]
